FAERS Safety Report 10460319 (Version 2)
Quarter: 2014Q3

REPORT INFORMATION
  Report Type: Report from Study
  Country: JP (occurrence: JP)
  Receive Date: 20140917
  Receipt Date: 20140926
  Transmission Date: 20150326
  Serious: Yes (Hospitalization, Other)
  Sender: FDA-Public Use
  Company Number: JP-ASTRAZENECA-2014SE68899

PATIENT
  Age: 26208 Day
  Sex: Female

DRUGS (6)
  1. ZD6474 [Suspect]
     Active Substance: VANDETANIB
     Indication: THYROID CANCER METASTATIC
     Route: 048
     Dates: start: 20140905, end: 20140909
  2. THYRADIN S [Concomitant]
     Active Substance: LEVOTHYROXINE SODIUM
     Indication: HYPOTHYROIDISM
     Route: 048
  3. CALCIUM LACTATE [Concomitant]
     Active Substance: CALCIUM LACTATE
     Indication: HYPOPARATHYROIDISM
     Route: 048
     Dates: start: 20140806
  4. ALFAROL [Concomitant]
     Active Substance: ALFACALCIDOL
     Indication: HYPOPARATHYROIDISM
     Route: 048
  5. ZD6474 [Suspect]
     Active Substance: VANDETANIB
     Indication: THYROID CANCER METASTATIC
     Dosage: DOSE REDUCED TO 200 MG
     Route: 048
     Dates: start: 20140911
  6. AZILVA [Concomitant]
     Active Substance: AZILSARTAN KAMEDOXOMIL
     Indication: HYPERTENSION
     Route: 048
     Dates: start: 20140807

REACTIONS (1)
  - Dizziness [Recovered/Resolved]

NARRATIVE: CASE EVENT DATE: 20140906
